FAERS Safety Report 19369711 (Version 2)
Quarter: 2021Q2

REPORT INFORMATION
  Report Type: Spontaneous
  Country: US (occurrence: US)
  Receive Date: 20210603
  Receipt Date: 20210609
  Transmission Date: 20210717
  Serious: No
  Sender: FDA-Public Use
  Company Number: US-PFIZER INC-2021258159

PATIENT
  Sex: Female

DRUGS (1)
  1. DEPO?TESTOSTERONE [Suspect]
     Active Substance: TESTOSTERONE CYPIONATE
     Dosage: UNK (200 MG IN 1 ML)

REACTIONS (3)
  - Poor quality product administered [Unknown]
  - Rash [Unknown]
  - Liquid product physical issue [Unknown]
